FAERS Safety Report 17208454 (Version 2)
Quarter: 2019Q4

REPORT INFORMATION
  Report Type: Spontaneous
  Country: CN (occurrence: CN)
  Receive Date: 20191227
  Receipt Date: 20191231
  Transmission Date: 20200122
  Serious: Yes (Other)
  Sender: FDA-Public Use
  Company Number: CN-PFIZER INC-2019554079

PATIENT
  Age: 37 Year
  Sex: Male

DRUGS (2)
  1. SODIUM CHLORIDE. [Concomitant]
     Active Substance: SODIUM CHLORIDE
     Dosage: 100 ML, 2X/DAY
     Route: 041
  2. CEFOPERAZONE SODIUM [Suspect]
     Active Substance: CEFOPERAZONE SODIUM
     Indication: INFECTION
     Dosage: 2 G, 2X/DAY
     Route: 041

REACTIONS (2)
  - Prothrombin time prolonged [Unknown]
  - Upper gastrointestinal haemorrhage [Recovered/Resolved]
